FAERS Safety Report 12851739 (Version 1)
Quarter: 2016Q4

REPORT INFORMATION
  Report Type: Report from Study
  Country: US (occurrence: US)
  Receive Date: 20161017
  Receipt Date: 20161017
  Transmission Date: 20170207
  Serious: Yes (Other)
  Sender: FDA-Public Use
  Company Number: US-AMGEN-USASL2016140499

PATIENT
  Age: 68 Year
  Sex: Female

DRUGS (1)
  1. REPATHA [Suspect]
     Active Substance: EVOLOCUMAB
     Indication: PRODUCT USED FOR UNKNOWN INDICATION
     Dosage: 140 MG, Q2WK
     Route: 065
     Dates: start: 201512

REACTIONS (6)
  - Malaise [Unknown]
  - Fungal infection [Unknown]
  - Vaginal haemorrhage [Unknown]
  - Appendicitis [Unknown]
  - Adnexa uteri pain [Unknown]
  - Renal mass [Unknown]
